FAERS Safety Report 8245266-5 (Version None)
Quarter: 2012Q1

REPORT INFORMATION
  Report Type: 
  Country: None (occurrence: None)
  Receive Date: 20120329
  Receipt Date: 20120316
  Transmission Date: 20120608
  Serious: Yes (Hospitalization, Other)
  Sender: FDA-Public Use
  Company Number: US-ROCHE-1053153

PATIENT
  Sex: Female

DRUGS (3)
  1. RIBAVIRIN [Suspect]
     Indication: HEPATITIS C
     Route: 048
     Dates: start: 20120127
  2. PEGASYS [Suspect]
     Indication: HEPATITIS C
     Route: 058
     Dates: start: 20120127
  3. TELAPREVIR [Suspect]
     Indication: HEPATITIS C
     Dates: start: 20120127

REACTIONS (7)
  - ASTHMA [None]
  - LOCAL SWELLING [None]
  - SWELLING FACE [None]
  - ASTIGMATISM [None]
  - HEPATITIS C RNA INCREASED [None]
  - SWELLING [None]
  - ABDOMINAL DISTENSION [None]
